FAERS Safety Report 11223339 (Version 1)
Quarter: 2015Q2

REPORT INFORMATION
  Report Type: Report from Study
  Country: MX (occurrence: MX)
  Receive Date: 20150627
  Receipt Date: 20150627
  Transmission Date: 20150821
  Serious: Yes (Hospitalization, Other)
  Sender: FDA-Public Use
  Company Number: PHHY2015MX072673

PATIENT
  Age: 45 Year
  Sex: Female

DRUGS (1)
  1. ULTIBRO BREEZHALER [Suspect]
     Active Substance: GLYCOPYRRONIUM\INDACATEROL
     Indication: SLEEP APNOEA SYNDROME
     Dosage: 1 DF, QD
     Route: 065
     Dates: start: 20150525, end: 20150605

REACTIONS (7)
  - Bronchopneumonia [Not Recovered/Not Resolved]
  - Oropharyngeal candidiasis [Not Recovered/Not Resolved]
  - Pharyngitis streptococcal [Not Recovered/Not Resolved]
  - Infectious disease carrier [Not Recovered/Not Resolved]
  - Off label use [Recovered/Resolved]
  - Candida infection [Not Recovered/Not Resolved]
  - Streptococcus test positive [Not Recovered/Not Resolved]

NARRATIVE: CASE EVENT DATE: 20150525
